FAERS Safety Report 23958516 (Version 1)
Quarter: 2024Q2

REPORT INFORMATION
  Report Type: Spontaneous
  Country: CH (occurrence: CH)
  Receive Date: 20240610
  Receipt Date: 20240610
  Transmission Date: 20240716
  Serious: Yes (Other)
  Sender: FDA-Public Use
  Company Number: CH-VERTEX PHARMACEUTICALS-2023-017881

PATIENT
  Age: 9 Year
  Sex: Male
  Weight: 25 kg

DRUGS (5)
  1. TRIKAFTA [Suspect]
     Active Substance: ELEXACAFTOR\IVACAFTOR\TEZACAFTOR
     Indication: Cystic fibrosis
     Dosage: 2 TABS (100MG ELEXA/ 50MG TEZA/ 75MG IVA) AND 1 TAB (150MG IVA))
     Route: 048
     Dates: start: 202207
  2. TRIKAFTA [Suspect]
     Active Substance: ELEXACAFTOR\IVACAFTOR\TEZACAFTOR
     Dosage: REDUCED DOSE: (100MG ELEXA/ 50MG TEZA/ 75MG IVA) AND (75MG IVA))
     Route: 048
  3. TRIKAFTA [Suspect]
     Active Substance: ELEXACAFTOR\IVACAFTOR\TEZACAFTOR
     Dosage: 1/4TH PEDIATRIC DOSE
     Route: 048
     Dates: start: 202307
  4. TRIKAFTA [Suspect]
     Active Substance: ELEXACAFTOR\IVACAFTOR\TEZACAFTOR
     Dosage: HALF PEDIATRIC DOSE
     Route: 048
     Dates: start: 2023
  5. SODIUM CHLORIDE [Concomitant]
     Active Substance: SODIUM CHLORIDE
     Indication: Cystic fibrosis

REACTIONS (3)
  - Intracranial pressure increased [Recovered/Resolved]
  - Strabismus [Recovered/Resolved]
  - Vitamin A increased [Unknown]

NARRATIVE: CASE EVENT DATE: 20220101
